FAERS Safety Report 12423558 (Version 1)
Quarter: 2016Q2

REPORT INFORMATION
  Report Type: Spontaneous
  Country: US (occurrence: None)
  Receive Date: 20160531
  Receipt Date: 20160531
  Transmission Date: 20160815
  Serious: Yes (Hospitalization)
  Sender: FDA-Public Use
  Company Number: None

PATIENT
  Age: 48 Year
  Sex: Female
  Weight: 92.99 kg

DRUGS (11)
  1. ZOLOFT [Concomitant]
     Active Substance: SERTRALINE HYDROCHLORIDE
  2. IODINE. [Concomitant]
     Active Substance: IODINE
  3. NEURONTIN [Concomitant]
     Active Substance: GABAPENTIN
  4. VITAMIN B12 COMPLEX [Concomitant]
  5. LYRICA [Suspect]
     Active Substance: PREGABALIN
     Indication: FIBROMYALGIA
     Route: 048
     Dates: start: 20090116, end: 20160528
  6. VITAMIN D CHEWABLE [Concomitant]
  7. SUBOXONE [Concomitant]
     Active Substance: BUPRENORPHINE HYDROCHLORIDE\NALOXONE HYDROCHLORIDE
  8. LYRICA [Suspect]
     Active Substance: PREGABALIN
     Indication: MAJOR DEPRESSION
     Route: 048
     Dates: start: 20090116, end: 20160528
  9. SYNTHROID [Concomitant]
     Active Substance: LEVOTHYROXINE SODIUM
  10. CPAP MACHINE [Concomitant]
  11. CYMBALTA [Concomitant]
     Active Substance: DULOXETINE HYDROCHLORIDE

REACTIONS (11)
  - Apparent death [None]
  - Memory impairment [None]
  - Impaired work ability [None]
  - Burning sensation [None]
  - Cold sweat [None]
  - Pain [None]
  - Crying [None]
  - Activities of daily living impaired [None]
  - Weight increased [None]
  - Torticollis [None]
  - Drug dose omission [None]

NARRATIVE: CASE EVENT DATE: 20090401
